FAERS Safety Report 14914533 (Version 1)
Quarter: 2018Q2

REPORT INFORMATION
  Report Type: Spontaneous
  Country: US (occurrence: US)
  Receive Date: 20180518
  Receipt Date: 20180518
  Transmission Date: 20180711
  Serious: No
  Sender: FDA-Public Use
  Company Number: US-JAZZ-2018-US-004308

PATIENT
  Age: 22 Year
  Sex: Female

DRUGS (2)
  1. XYREM [Suspect]
     Active Substance: SODIUM OXYBATE
     Indication: NARCOLEPSY
     Dosage: 4.5 G, FIRST DOSE
     Route: 048
  2. XYREM [Suspect]
     Active Substance: SODIUM OXYBATE
     Dosage: 3.75 G, SECOND DOSE
     Route: 048

REACTIONS (5)
  - Fall [Recovered/Resolved]
  - Condition aggravated [Not Recovered/Not Resolved]
  - Binge eating [Not Recovered/Not Resolved]
  - Head injury [Not Recovered/Not Resolved]
  - Abnormal sleep-related event [Unknown]

NARRATIVE: CASE EVENT DATE: 20180309
